FAERS Safety Report 7343415-4 (Version None)
Quarter: 2011Q1

REPORT INFORMATION
  Report Type: 
  Country: None (occurrence: None)
  Receive Date: 20110310
  Receipt Date: 20100125
  Transmission Date: 20110831
  Serious: No
  Sender: FDA-Public Use
  Company Number: US-BAYER-201012344NA

PATIENT
  Sex: Female

DRUGS (1)
  1. MIRENA [Suspect]
     Indication: CONTRACEPTION
     Dosage: 20 ?G/D, CONT
     Route: 015
     Dates: start: 20100101

REACTIONS (4)
  - MEDICAL DEVICE COMPLICATION [None]
  - POST PROCEDURAL HAEMORRHAGE [None]
  - BACK PAIN [None]
  - PELVIC PAIN [None]
